FAERS Safety Report 7712669-4 (Version None)
Quarter: 2011Q3

REPORT INFORMATION
  Report Type: 
  Country: None (occurrence: None)
  Receive Date: 20110826
  Receipt Date: 20110822
  Transmission Date: 20111222
  Serious: Yes (Hospitalization, Other)
  Sender: FDA-Public Use
  Company Number: US-MERCK-1106USA00670

PATIENT
  Age: 78 Year
  Sex: Female

DRUGS (5)
  1. FOSAMAX [Suspect]
     Indication: OSTEOPENIA
     Route: 048
     Dates: start: 20040127, end: 20110101
  2. FOSAMAX [Suspect]
     Route: 048
     Dates: start: 20040101, end: 20070101
  3. FOSAMAX [Suspect]
     Indication: OSTEOPOROSIS
     Route: 048
     Dates: start: 20040127, end: 20110101
  4. KLOR-CON [Concomitant]
     Route: 065
     Dates: start: 20040101
  5. FOSAMAX [Suspect]
     Route: 048
     Dates: start: 20040101, end: 20070101

REACTIONS (13)
  - FOOT FRACTURE [None]
  - TENDON INJURY [None]
  - DIABETES MELLITUS [None]
  - ARTHRALGIA [None]
  - BONE DEFORMITY [None]
  - FEMUR FRACTURE [None]
  - BLOOD CHOLESTEROL INCREASED [None]
  - ARTHRITIS [None]
  - MALIGNANT MELANOMA [None]
  - LOW TURNOVER OSTEOPATHY [None]
  - HYPERTENSION [None]
  - INSOMNIA [None]
  - MUSCLE INJURY [None]
